FAERS Safety Report 8632793 (Version 2)
Quarter: 2012Q4

REPORT INFORMATION
  Report Type: 
  Country: BR (occurrence: BR)
  Receive Date: 20120625
  Receipt Date: 20120927
  Transmission Date: 20130627
  Serious: Yes (Hospitalization)
  Sender: FDA-Public Use
  Company Number: BR-ROCHE-1080959

PATIENT
  Sex: Female
  Weight: 56 kg

DRUGS (1)
  1. RIVOTRIL [Suspect]
     Indication: INSOMNIA RELATED TO ANOTHER MENTAL CONDITION
     Route: 048
     Dates: start: 2007, end: 20120619

REACTIONS (3)
  - Accidental exposure to product [Recovered/Resolved]
  - Dysstasia [Unknown]
  - Somnolence [Not Recovered/Not Resolved]
